FAERS Safety Report 24256120 (Version 3)
Quarter: 2024Q4

REPORT INFORMATION
  Report Type: Report from Study
  Country: US (occurrence: US)
  Receive Date: 20240827
  Receipt Date: 20241004
  Transmission Date: 20250115
  Serious: Yes (Other)
  Sender: NOVARTIS
  Company Number: US-002147023-NVSC2024US106731

PATIENT
  Age: 29 Year
  Sex: Female

DRUGS (1)
  1. KESIMPTA [Suspect]
     Active Substance: OFATUMUMAB
     Indication: Relapsing multiple sclerosis
     Dosage: 20 MG, QMO
     Route: 058
     Dates: start: 20240514

REACTIONS (7)
  - Multiple sclerosis relapse [Not Recovered/Not Resolved]
  - Blindness transient [Recovered/Resolved]
  - Brain fog [Unknown]
  - Somnolence [Unknown]
  - Feeling abnormal [Unknown]
  - Hypoaesthesia [Unknown]
  - Illness [Unknown]

NARRATIVE: CASE EVENT DATE: 20240520
